FAERS Safety Report 18376910 (Version 1)
Quarter: 2020Q4

REPORT INFORMATION
  Report Type: Spontaneous
  Country: US (occurrence: US)
  Receive Date: 20201012
  Receipt Date: 20201012
  Transmission Date: 20210114
  Serious: No
  Sender: FDA-Public Use
  Company Number: None

PATIENT
  Age: 49 Year
  Sex: Male
  Weight: 86.85 kg

DRUGS (5)
  1. LOW DOSE ASPIRIN [Concomitant]
     Active Substance: ASPIRIN
  2. OLMESARTAN MEDOXOMIL. [Suspect]
     Active Substance: OLMESARTAN MEDOXOMIL
     Indication: HYPERTENSION
     Dosage: ?          QUANTITY:1 TABLET(S);?
     Route: 048
     Dates: start: 20201001, end: 20201002
  3. VITAMINERAL GREEN [Concomitant]
  4. CHEWABLE VITAMIN C [Concomitant]
  5. COMPLEMENT PLUS ESSENTIAL VEGAN NUTRIENTS [Concomitant]

REACTIONS (1)
  - Abdominal pain [None]

NARRATIVE: CASE EVENT DATE: 20201002
